FAERS Safety Report 7457457-1 (Version None)
Quarter: 2011Q2

REPORT INFORMATION
  Report Type: 
  Country: None (occurrence: None)
  Receive Date: 20110504
  Receipt Date: 20110420
  Transmission Date: 20111010
  Serious: Yes (Hospitalization)
  Sender: FDA-Public Use
  Company Number: US-JNJFOC-20110410257

PATIENT
  Sex: Male
  Weight: 75.3 kg

DRUGS (6)
  1. HYDROCODONE BITARTRATE [Concomitant]
  2. MULTI-VITAMINS [Concomitant]
  3. PREVACID [Concomitant]
  4. FERROUS SULFATE TAB [Concomitant]
  5. REMICADE [Suspect]
     Indication: INFLAMMATORY BOWEL DISEASE
     Route: 042
  6. IMODIUM [Concomitant]

REACTIONS (1)
  - INTESTINAL STENOSIS [None]
